FAERS Safety Report 4862096-2 (Version None)
Quarter: 2005Q4

REPORT INFORMATION
  Report Type: 
  Country: None (occurrence: None)
  Receive Date: 20051221
  Receipt Date: 20051125
  Transmission Date: 20060501
  Serious: Yes (Other)
  Sender: FDA-Public Use
  Company Number: JP-BOEHRINGER INGELHEIM PHARMACEUTICALS, INC.-2005-BP-20666NB

PATIENT
  Age: 73 Year
  Sex: Male

DRUGS (3)
  1. MICARDIS [Suspect]
     Indication: HYPERTENSION
     Route: 048
  2. ADALAT [Concomitant]
     Route: 048
  3. FUROSEMIDE [Concomitant]
     Route: 048

REACTIONS (1)
  - HYPOGLYCAEMIA [None]
